FAERS Safety Report 14141156 (Version 3)
Quarter: 2018Q1

REPORT INFORMATION
  Report Type: Report from Study
  Country: FR (occurrence: FR)
  Receive Date: 20171030
  Receipt Date: 20180223
  Transmission Date: 20180508
  Serious: Yes (Life-Threatening, Hospitalization)
  Sender: FDA-Public Use
  Company Number: PHHY2017FR155102

PATIENT
  Sex: Male

DRUGS (8)
  1. LANREOTIDE [Concomitant]
     Active Substance: LANREOTIDE
     Indication: PRODUCT USED FOR UNKNOWN INDICATION
     Dosage: 120 MG, QMO
     Route: 065
  2. AFINITOR [Suspect]
     Active Substance: EVEROLIMUS
     Indication: PANCREATIC NEUROENDOCRINE TUMOUR METASTATIC
     Dosage: 10 MG, QD
     Route: 065
     Dates: start: 20160111, end: 20170909
  3. ESIDREX [Concomitant]
     Active Substance: HYDROCHLOROTHIAZIDE
     Dosage: UNK
     Route: 065
     Dates: start: 20151027
  4. DIAZOXIDE [Concomitant]
     Active Substance: DIAZOXIDE
     Indication: PRODUCT USED FOR UNKNOWN INDICATION
     Route: 065
  5. INNOHEP [Concomitant]
     Active Substance: TINZAPARIN SODIUM
     Indication: VENOUS THROMBOSIS
     Dosage: UNK
     Route: 058
     Dates: start: 20151017
  6. SPECIAFOLDINE [Concomitant]
     Active Substance: FOLIC ACID
     Indication: ANAEMIA
     Dosage: UNK
     Route: 048
     Dates: start: 20150801
  7. OXYCONTIN [Concomitant]
     Active Substance: OXYCODONE HYDROCHLORIDE
     Indication: PAIN
     Dosage: UNK
     Route: 048
     Dates: start: 20150615
  8. ESIDREX [Concomitant]
     Active Substance: HYDROCHLOROTHIAZIDE
     Indication: OEDEMA PERIPHERAL
     Dosage: UNK
     Route: 048
     Dates: start: 20150615

REACTIONS (4)
  - Gait disturbance [Recovered/Resolved]
  - Back pain [Recovered/Resolved]
  - Bone pain [Unknown]
  - Hyperthermia [Unknown]

NARRATIVE: CASE EVENT DATE: 20170810
